FAERS Safety Report 4788154-9 (Version None)
Quarter: 2005Q4

REPORT INFORMATION
  Report Type: 
  Country: None (occurrence: None)
  Receive Date: 20051005
  Receipt Date: 20050214
  Transmission Date: 20060501
  Serious: Yes (Hospitalization, Other)
  Sender: FDA-Public Use
  Company Number: US-BOEHRINGER INGELHEIM PHARMACEUTICALS, INC.-2005-BP-02509BP

PATIENT
  Sex: Male

DRUGS (7)
  1. SPIRIVA [Suspect]
     Indication: CHRONIC OBSTRUCTIVE PULMONARY DISEASE
     Route: 055
     Dates: start: 20041101
  2. SPIRIVA [Suspect]
     Indication: PULMONARY CONGESTION
  3. SPIRIVA [Suspect]
     Indication: EMPHYSEMA
  4. SPIRIVA [Suspect]
     Indication: LUNG NEOPLASM MALIGNANT
  5. FORADIL [Concomitant]
     Dosage: 1 TIMES/DAY
     Dates: start: 20041101
  6. ALBUTEROL [Concomitant]
     Dosage: 1 TIMES/DAY
     Dates: start: 20050201
  7. ACETYLCYSTEINE [Concomitant]
     Dosage: 2/DAY
     Dates: start: 20050201

REACTIONS (3)
  - AGEUSIA [None]
  - LUNG NEOPLASM MALIGNANT [None]
  - PHARMACEUTICAL PRODUCT COMPLAINT [None]
